FAERS Safety Report 8278359 (Version 2)
Quarter: 2013Q4

REPORT INFORMATION
  Report Type: Spontaneous
  Country: US (occurrence: US)
  Receive Date: 20111207
  Receipt Date: 20131204
  Transmission Date: 20140711
  Serious: Yes (Hospitalization)
  Sender: FDA-Public Use
  Company Number: US-GLAXOSMITHKLINE-B0767263A

PATIENT
  Age: 62 Year
  Sex: Male
  Weight: 83.2 kg

DRUGS (1)
  1. AVANDIA [Suspect]
     Indication: DIABETES MELLITUS
     Route: 048
     Dates: start: 20030327, end: 20070920

REACTIONS (5)
  - Cardiac failure congestive [Unknown]
  - Stent placement [Unknown]
  - Cardiac assistance device user [Unknown]
  - Cardiovascular disorder [Unknown]
  - Atrial fibrillation [Unknown]
